FAERS Safety Report 22370263 (Version 9)
Quarter: 2024Q2

REPORT INFORMATION
  Report Type: Spontaneous
  Country: JP (occurrence: JP)
  Receive Date: 20230526
  Receipt Date: 20240604
  Transmission Date: 20240716
  Serious: Yes (Life-Threatening, Hospitalization, Other)
  Sender: FDA-Public Use
  Company Number: JP-MSD-M2023-19881

PATIENT
  Age: 49 Year
  Sex: Female

DRUGS (3)
  1. KEYTRUDA [Suspect]
     Active Substance: PEMBROLIZUMAB
     Indication: Cervix carcinoma recurrent
     Dosage: 200 MILLIGRAM, Q3W
     Route: 041
     Dates: start: 20230306, end: 20230415
  2. PACLITAXEL [Suspect]
     Active Substance: PACLITAXEL
     Indication: Cervix carcinoma recurrent
     Dosage: UNK
     Route: 065
     Dates: start: 20230306, end: 2023
  3. CARBOPLATIN [Suspect]
     Active Substance: CARBOPLATIN
     Indication: Cervix carcinoma recurrent
     Dosage: UNK
     Route: 065
     Dates: start: 20230306, end: 2023

REACTIONS (8)
  - Cytokine release syndrome [Recovered/Resolved]
  - Pyelonephritis [Unknown]
  - Erythema multiforme [Unknown]
  - Haemophagocytic lymphohistiocytosis [Unknown]
  - Rhabdomyolysis [Unknown]
  - Immune-mediated pancreatitis [Unknown]
  - Immune-mediated enterocolitis [Unknown]
  - Rash [Unknown]

NARRATIVE: CASE EVENT DATE: 20230101
